FAERS Safety Report 11822244 (Version 1)
Quarter: 2015Q4

REPORT INFORMATION
  Report Type: Spontaneous
  Country: US (occurrence: US)
  Receive Date: 20151210
  Receipt Date: 20151210
  Transmission Date: 20160305
  Serious: No
  Sender: FDA-Public Use
  Company Number: US-JNJFOC-20150721195

PATIENT
  Sex: Male

DRUGS (15)
  1. LOSARTAN POTASSIUM. [Concomitant]
     Active Substance: LOSARTAN POTASSIUM
  2. GABAPENTIN. [Concomitant]
     Active Substance: GABAPENTIN
  3. ALLOPURINOL. [Concomitant]
     Active Substance: ALLOPURINOL
  4. NOVOLOG [Concomitant]
     Active Substance: INSULIN ASPART
  5. RANEXA [Concomitant]
     Active Substance: RANOLAZINE
  6. FUROSEMIDE. [Concomitant]
     Active Substance: FUROSEMIDE
  7. IMBRUVICA [Suspect]
     Active Substance: IBRUTINIB
     Indication: LYMPHOMA
     Route: 048
  8. CHOLECALCIFEROL [Concomitant]
     Active Substance: CHOLECALCIFEROL
  9. CYCLOBENZAPRINE HCL [Concomitant]
     Active Substance: CYCLOBENZAPRINE HYDROCHLORIDE
  10. IMBRUVICA [Suspect]
     Active Substance: IBRUTINIB
     Indication: LYMPHOMA
     Route: 048
  11. IMBRUVICA [Suspect]
     Active Substance: IBRUTINIB
     Indication: LYMPHOMA
     Route: 048
     Dates: start: 20150424
  12. CALCIUM AND VITAMIN D3 [Concomitant]
     Active Substance: CALCIUM\CHOLECALCIFEROL
  13. LANTUS [Concomitant]
     Active Substance: INSULIN GLARGINE
  14. NEXIUM [Concomitant]
     Active Substance: ESOMEPRAZOLE MAGNESIUM
  15. MINOCYCLINE HYDROCHLORIDE. [Concomitant]
     Active Substance: MINOCYCLINE HYDROCHLORIDE

REACTIONS (8)
  - Mass [Unknown]
  - Weight decreased [Unknown]
  - Muscle spasms [Unknown]
  - Headache [Unknown]
  - Back pain [Unknown]
  - Fall [Unknown]
  - Decreased appetite [Unknown]
  - Epistaxis [Unknown]

NARRATIVE: CASE EVENT DATE: 2015
